FAERS Safety Report 15010045 (Version 4)
Quarter: 2020Q1

REPORT INFORMATION
  Report Type: Spontaneous
  Country: US (occurrence: US)
  Receive Date: 20180614
  Receipt Date: 20200205
  Transmission Date: 20200409
  Serious: No
  Sender: FDA-Public Use
  Company Number: US-PFIZER INC-2018240911

PATIENT
  Age: 58 Year
  Sex: Female
  Weight: 66 kg

DRUGS (4)
  1. LYRICA [Suspect]
     Active Substance: PREGABALIN
     Dosage: UNK
  2. LIPITOR [Concomitant]
     Active Substance: ATORVASTATIN CALCIUM
     Indication: BLOOD CHOLESTEROL ABNORMAL
     Dosage: 10 MG, SINGLE (ONCE)
  3. LYRICA [Suspect]
     Active Substance: PREGABALIN
     Dosage: 100 MG, 2X/DAY(1 CAP (100 MG) BY MOUTH 2 TIMES DAILY)
     Route: 048
  4. LYRICA [Suspect]
     Active Substance: PREGABALIN
     Indication: NEURALGIA
     Dosage: UNK

REACTIONS (9)
  - Blood pressure increased [Unknown]
  - Palpitations [Unknown]
  - Nausea [Unknown]
  - Malaise [Unknown]
  - Withdrawal syndrome [Unknown]
  - Dizziness [Unknown]
  - Vision blurred [Unknown]
  - Fall [Unknown]
  - Joint swelling [Not Recovered/Not Resolved]
